FAERS Safety Report 9254567 (Version 1)
Quarter: 2013Q1

REPORT INFORMATION
  Report Type: Spontaneous
  Country: US (occurrence: None)
  Receive Date: 20121203
  Receipt Date: 20121203
  Transmission Date: 20140127
  Serious: Yes (Hospitalization, Other)
  Sender: FDA-Public Use
  Company Number: 2011SP050836

PATIENT
  Age: 22 Year
  Sex: Female
  Weight: 72.6 kg

DRUGS (1)
  1. NUVARING (ETONOGESTREL (+) ESTRADIOL) VAGINAL RING [Suspect]
     Indication: CONTRACEPTION
     Dates: start: 200909, end: 200911

REACTIONS (3)
  - Pulmonary embolism [None]
  - Influenza [None]
  - Cervical dysplasia [None]
